FAERS Safety Report 11740378 (Version 2)
Quarter: 2015Q4

REPORT INFORMATION
  Report Type: Spontaneous
  Country: US (occurrence: US)
  Receive Date: 20151110
  Receipt Date: 20151120
  Transmission Date: 20160304
  Serious: No
  Sender: FDA-Public Use
  Company Number: US-ELI_LILLY_AND_COMPANY-US201205006979

PATIENT
  Age: 86 Year
  Sex: Female

DRUGS (4)
  1. FORTEO [Suspect]
     Active Substance: TERIPARATIDE
     Dosage: 20 UG, QD
     Dates: end: 20120730
  2. FORTEO [Suspect]
     Active Substance: TERIPARATIDE
     Indication: OSTEOPOROSIS
     Dosage: 20 UG, QD
     Route: 058
  3. FORTEO [Suspect]
     Active Substance: TERIPARATIDE
     Dosage: 20 UG, QD
     Route: 058
  4. FORTEO [Suspect]
     Active Substance: TERIPARATIDE
     Dosage: 20 UG, QD
     Route: 058
     Dates: end: 20120513

REACTIONS (17)
  - Feeling abnormal [Not Recovered/Not Resolved]
  - Bone pain [Unknown]
  - Eye pain [Unknown]
  - Blood pressure fluctuation [Unknown]
  - Eye haemorrhage [Recovered/Resolved]
  - Stress [Unknown]
  - Fatigue [Unknown]
  - Pain in extremity [Unknown]
  - Blood pressure abnormal [Unknown]
  - Arthralgia [Not Recovered/Not Resolved]
  - Hearing impaired [Unknown]
  - Heart rate irregular [Unknown]
  - Chest discomfort [Unknown]
  - Asthenia [Unknown]
  - Eye disorder [Unknown]
  - Pain [Unknown]
  - Dyspnoea [Unknown]

NARRATIVE: CASE EVENT DATE: 20120626
